FAERS Safety Report 21568498 (Version 2)
Quarter: 2022Q4

REPORT INFORMATION
  Report Type: Report from Study
  Country: US (occurrence: US)
  Receive Date: 20221108
  Receipt Date: 20221111
  Transmission Date: 20230113
  Serious: No
  Sender: FDA-Public Use
  Company Number: US-ABBVIE-4155712

PATIENT
  Age: 55 Year
  Sex: Female

DRUGS (1)
  1. RINVOQ [Suspect]
     Active Substance: UPADACITINIB
     Indication: Psoriatic arthropathy
     Route: 048
     Dates: start: 20220317

REACTIONS (3)
  - SARS-CoV-2 test positive [Unknown]
  - Asthma [Unknown]
  - Respiratory syncytial virus test positive [Recovering/Resolving]

NARRATIVE: CASE EVENT DATE: 20210401
